FAERS Safety Report 13738259 (Version 1)
Quarter: 2017Q3

REPORT INFORMATION
  Report Type: Spontaneous
  Country: BR (occurrence: BR)
  Receive Date: 20170710
  Receipt Date: 20170710
  Transmission Date: 20171127
  Serious: Yes (Other)
  Sender: FDA-Public Use
  Company Number: PHHY2011BR111763

PATIENT
  Age: 56 Year
  Sex: Male

DRUGS (2)
  1. OLCADIL [Suspect]
     Active Substance: CLOXAZOLAM
     Dosage: 0.25 TAB, DAILY
  2. HYDERGIN [Suspect]
     Active Substance: ERGOLOID MESYLATES

REACTIONS (9)
  - Respiratory depression [Recovered/Resolved]
  - Blood pressure increased [Unknown]
  - Nervousness [Recovered/Resolved]
  - Confusional state [Unknown]
  - Vision blurred [Recovered/Resolved]
  - Migraine [Recovered/Resolved]
  - Anxiety [Recovered/Resolved]
  - Drug administration error [Not Recovered/Not Resolved]
  - Discomfort [Recovered/Resolved]

NARRATIVE: CASE EVENT DATE: 20111220
